FAERS Safety Report 6978378-4 (Version None)
Quarter: 2010Q3

REPORT INFORMATION
  Report Type: 
  Country: None (occurrence: None)
  Receive Date: 20100913
  Receipt Date: 20100901
  Transmission Date: 20110219
  Serious: Yes (Other)
  Sender: FDA-Public Use
  Company Number: FR-PFIZER INC-2010112152

PATIENT
  Age: 29 Year
  Sex: Female

DRUGS (9)
  1. ATARAX [Suspect]
     Dosage: 300 MG, DAILY
     Route: 048
     Dates: start: 20100723, end: 20100813
  2. NORSET [Suspect]
     Dosage: 2 UNITS, UNK
     Route: 048
     Dates: start: 20100723, end: 20100813
  3. NORSET [Suspect]
     Dosage: UNK
     Dates: start: 20100818
  4. EFFEXOR [Suspect]
     Dosage: 375 MG, UNK
     Route: 048
     Dates: start: 20100723, end: 20100813
  5. EFFEXOR [Suspect]
     Dosage: 225 MG, UNK
     Route: 048
     Dates: start: 20100818
  6. SERTRALINE [Concomitant]
     Dosage: UNK
  7. LEXOMIL [Concomitant]
     Dosage: DOSAGE WAS 3/4 OF TABLET PER DAY
  8. IMOVANE [Concomitant]
     Dosage: DOSAGE WAS 1 TO 2 TABLETS AT NIGHT
  9. DIAZEPAM [Suspect]
     Dosage: 5 MG, 1X/DAY

REACTIONS (2)
  - DYSARTHRIA [None]
  - SPEECH DISORDER [None]
